FAERS Safety Report 8978326 (Version 1)
Quarter: 2012Q4

REPORT INFORMATION
  Report Type: Report from Study
  Country: CA (occurrence: CA)
  Receive Date: 20121221
  Receipt Date: 20121221
  Transmission Date: 20130627
  Serious: Yes (Other)
  Sender: FDA-Public Use
  Company Number: CA-JNJFOC-20121205782

PATIENT
  Age: 77 None
  Sex: Male

DRUGS (8)
  1. REMICADE [Suspect]
     Indication: RHEUMATOID ARTHRITIS
     Route: 042
     Dates: start: 20060130
  2. REMICADE [Suspect]
     Indication: RHEUMATOID ARTHRITIS
     Route: 042
     Dates: start: 20121018
  3. METHOTREXATE [Concomitant]
     Route: 065
  4. NORVASC [Concomitant]
     Route: 065
  5. DIDROCAL [Concomitant]
     Route: 065
  6. SYNTHROID [Concomitant]
     Route: 065
  7. HYDRAZIDE [Concomitant]
     Route: 065
  8. LOSEC [Concomitant]
     Route: 065

REACTIONS (4)
  - Accident [Not Recovered/Not Resolved]
  - Limb injury [Not Recovered/Not Resolved]
  - Inflammation of wound [Not Recovered/Not Resolved]
  - Impaired healing [Not Recovered/Not Resolved]
